FAERS Safety Report 7724170-2 (Version None)
Quarter: 2011Q3

REPORT INFORMATION
  Report Type: 
  Country: None (occurrence: None)
  Receive Date: 20110901
  Receipt Date: 20110822
  Transmission Date: 20111222
  Serious: Yes (Hospitalization)
  Sender: FDA-Public Use
  Company Number: JP-ROCHE-799302

PATIENT
  Sex: Female
  Weight: 48 kg

DRUGS (10)
  1. TOCILIZUMAB [Suspect]
     Route: 041
     Dates: start: 20110630, end: 20110728
  2. AZULFIDINE [Concomitant]
     Dosage: FORM: ENTERIC COATING DRUG
     Route: 048
  3. PREDNISOLONE [Concomitant]
     Dosage: FORM: PERORAL AGENT
     Route: 048
  4. KENTAN [Concomitant]
     Dosage: FORM: PERORAL AGENT
     Route: 048
  5. VOLTAREN [Concomitant]
     Route: 051
  6. TOCILIZUMAB [Suspect]
     Route: 041
     Dates: start: 20091210, end: 20100304
  7. TOCILIZUMAB [Suspect]
     Route: 041
     Dates: start: 20100715, end: 20100816
  8. ENBREL [Concomitant]
     Indication: RHEUMATOID ARTHRITIS
     Dates: start: 20080726, end: 20080731
  9. TOCILIZUMAB [Suspect]
     Indication: RHEUMATOID ARTHRITIS
     Route: 041
     Dates: start: 20080807, end: 20090818
  10. RISEDRONATE SODIUM [Concomitant]
     Dosage: FORM: PERORAL AGENT
     Route: 048

REACTIONS (2)
  - DECUBITUS ULCER [None]
  - INTERVERTEBRAL DISC PROTRUSION [None]
